FAERS Safety Report 8010251-5 (Version None)
Quarter: 2011Q4

REPORT INFORMATION
  Report Type: 
  Country: None (occurrence: None)
  Receive Date: 20111228
  Receipt Date: 20111227
  Transmission Date: 20120403
  Serious: Yes (Death)
  Sender: FDA-Public Use
  Company Number: IT-JNJFOC-20111209152

PATIENT
  Age: 62 Year
  Sex: Female

DRUGS (14)
  1. THALIDOMIDE [Suspect]
     Route: 065
  2. CYCLOPHOSPHAMIDE [Suspect]
     Indication: MULTIPLE MYELOMA
     Route: 065
  3. BORTEZOMIB [Suspect]
     Route: 042
  4. DEXAMETHASONE [Suspect]
     Route: 042
  5. DOXORUBICIN HCL [Suspect]
     Indication: MULTIPLE MYELOMA
     Route: 042
  6. BORTEZOMIB [Suspect]
     Route: 042
  7. THALIDOMIDE [Suspect]
     Indication: MULTIPLE MYELOMA
     Route: 065
  8. THALIDOMIDE [Suspect]
     Route: 065
  9. DEXAMETHASONE [Suspect]
     Route: 042
  10. CYTARABINE [Suspect]
     Indication: MULTIPLE MYELOMA
     Route: 037
  11. BORTEZOMIB [Suspect]
     Route: 042
  12. DEXAMETHASONE [Suspect]
     Indication: MULTIPLE MYELOMA
     Route: 042
  13. BORTEZOMIB [Suspect]
     Indication: MULTIPLE MYELOMA
     Route: 042
  14. DEXAMETHASONE [Suspect]
     Route: 042

REACTIONS (1)
  - MULTIPLE MYELOMA [None]
